FAERS Safety Report 10047200 (Version 1)
Quarter: 2014Q1

REPORT INFORMATION
  Report Type: Spontaneous
  Country: US (occurrence: US)
  Receive Date: 20140331
  Receipt Date: 20140331
  Transmission Date: 20141002
  Serious: No
  Sender: FDA-Public Use
  Company Number: US-MYLANLABS-2013S1019026

PATIENT
  Age: 52 Year
  Sex: Male

DRUGS (6)
  1. FENTANYL TRANSDERMAL SYSTEM [Suspect]
     Indication: BACK PAIN
     Dosage: Q3D
     Route: 062
     Dates: start: 20130822, end: 20130823
  2. OXYCODONE / ACETAMINOPHEN [Suspect]
     Indication: BACK PAIN
     Route: 048
     Dates: start: 20130822, end: 20130822
  3. BACLOFEN [Concomitant]
     Indication: PAIN
     Dosage: LAST DOSE WAS AT 9:00PM 08/22/2013.
     Route: 048
     Dates: start: 20130821
  4. ETODOLAC [Concomitant]
     Indication: PAIN
     Dosage: LAST DOSE WAS AT 7:00AM 08/23/2013.
     Route: 048
     Dates: start: 20130821
  5. TRAMADOL [Concomitant]
     Indication: PAIN
     Dosage: USED TWO (TO ACHIEVE TOTAL DOSE OF 100MG) AT 9:00PM 08/22/2013.
     Route: 048
  6. GABAPENTIN [Concomitant]
     Indication: PAIN
     Dosage: USED TWO (TO ACHIEVE TOTAL DOSE OF 600MG) AT 9:00PM 08/22/2013.
     Route: 048

REACTIONS (7)
  - Incorrect dose administered [Recovered/Resolved]
  - Dizziness [Not Recovered/Not Resolved]
  - Vomiting [Not Recovered/Not Resolved]
  - Feeling drunk [Not Recovered/Not Resolved]
  - Somnolence [Not Recovered/Not Resolved]
  - Nausea [Not Recovered/Not Resolved]
  - Therapy naive [Not Recovered/Not Resolved]
